FAERS Safety Report 23093056 (Version 1)
Quarter: 2023Q4

REPORT INFORMATION
  Report Type: Spontaneous
  Country: GB (occurrence: GB)
  Receive Date: 20231021
  Receipt Date: 20231021
  Transmission Date: 20240110
  Serious: Yes (Other)
  Sender: FDA-Public Use
  Company Number: None

PATIENT
  Age: 54 Year
  Sex: Female

DRUGS (3)
  1. OLANZAPINE [Suspect]
     Active Substance: OLANZAPINE
     Indication: Ill-defined disorder
     Dosage: 10MG
     Route: 048
     Dates: start: 202112
  2. OLANZAPINE [Suspect]
     Active Substance: OLANZAPINE
     Indication: Psychotic disorder
  3. ZOPICLONE [Concomitant]
     Active Substance: ZOPICLONE
     Indication: Ill-defined disorder
     Dosage: UNIT DOSE: 7.5MG

REACTIONS (6)
  - Hyporeflexia [Unknown]
  - Respiration abnormal [Unknown]
  - Respiratory depression [Unknown]
  - Heart rate increased [Unknown]
  - Chest pain [Unknown]
  - Flushing [Unknown]

NARRATIVE: CASE EVENT DATE: 20211201
